FAERS Safety Report 18107363 (Version 3)
Quarter: 2020Q4

REPORT INFORMATION
  Report Type: Spontaneous
  Country: US (occurrence: US)
  Receive Date: 20200804
  Receipt Date: 20201229
  Transmission Date: 20210113
  Serious: Yes (Other)
  Sender: FDA-Public Use
  Company Number: US-GILEAD-2020-0486772

PATIENT
  Age: 56 Year
  Sex: Male
  Weight: 97.51 kg

DRUGS (91)
  1. SYMTUZA [Concomitant]
     Active Substance: COBICISTAT\DARUNAVIR\EMTRICITABINE\TENOFOVIR ALAFENAMIDE
  2. DOLUTEGRAVIR [Concomitant]
     Active Substance: DOLUTEGRAVIR
  3. CLINDAMYCIN. [Concomitant]
     Active Substance: CLINDAMYCIN
  4. GABAPENTIN. [Concomitant]
     Active Substance: GABAPENTIN
  5. MAALOX [CALCIUM CARBONATE] [Concomitant]
     Active Substance: CALCIUM CARBONATE
  6. MORPHINE [Concomitant]
     Active Substance: MORPHINE
  7. NEUPOGEN [Concomitant]
     Active Substance: FILGRASTIM
  8. OXYCODONE [Concomitant]
     Active Substance: OXYCODONE
  9. RITONAVIR. [Concomitant]
     Active Substance: RITONAVIR
  10. SUGAMMADEX [Concomitant]
     Active Substance: SUGAMMADEX
  11. ZANTAC [Concomitant]
     Active Substance: RANITIDINE HYDROCHLORIDE
  12. ZYRTEC [Concomitant]
     Active Substance: CETIRIZINE HYDROCHLORIDE
  13. PROVIGIL [Concomitant]
     Active Substance: MODAFINIL
  14. TRUVADA [Suspect]
     Active Substance: EMTRICITABINE\TENOFOVIR DISOPROXIL FUMARATE
     Indication: HIV INFECTION
     Dosage: UNK
     Route: 048
     Dates: start: 2004
  15. KALETRA [Concomitant]
     Active Substance: LOPINAVIR\RITONAVIR
  16. LAMIVUDINE. [Concomitant]
     Active Substance: LAMIVUDINE
  17. ACETAMINOPHEN;HYDROCODONE [Concomitant]
     Active Substance: ACETAMINOPHEN\HYDROCODONE
  18. AMLODIPINE [Concomitant]
     Active Substance: AMLODIPINE BESYLATE
  19. CEFAZOLIN [Concomitant]
     Active Substance: CEFAZOLIN
  20. FINASTERIDE. [Concomitant]
     Active Substance: FINASTERIDE
  21. LINEZOLID. [Concomitant]
     Active Substance: LINEZOLID
  22. MECLOMEN [Concomitant]
     Active Substance: MECLOFENAMATE SODIUM
  23. PROPOFOL. [Concomitant]
     Active Substance: PROPOFOL
  24. TRUVADA [Suspect]
     Active Substance: EMTRICITABINE\TENOFOVIR DISOPROXIL FUMARATE
     Dosage: UNK
     Route: 065
     Dates: start: 200708, end: 201605
  25. TRIUMEQ [Concomitant]
     Active Substance: ABACAVIR SULFATE\DOLUTEGRAVIR SODIUM\LAMIVUDINE
  26. ASPIRIN [ACETYLSALICYLIC ACID] [Concomitant]
     Active Substance: ASPIRIN
  27. SCOPOLAMINE [HYOSCINE] [Concomitant]
     Active Substance: SCOPOLAMINE
  28. BIKTARVY [Concomitant]
     Active Substance: BICTEGRAVIR SODIUM\EMTRICITABINE\TENOFOVIR ALAFENAMIDE FUMARATE
  29. ACETAMINOPHEN W/OXYCODONE [Concomitant]
     Active Substance: ACETAMINOPHEN\OXYCODONE HYDROCHLORIDE
  30. CELECOXIB. [Concomitant]
     Active Substance: CELECOXIB
  31. DEXTROMETHORPHAN [Concomitant]
     Active Substance: DEXTROMETHORPHAN
  32. DOCUSATE [Concomitant]
     Active Substance: DOCUSATE
  33. ESOMEPRAZOLE. [Concomitant]
     Active Substance: ESOMEPRAZOLE MAGNESIUM
  34. FERROUS SULFATE. [Concomitant]
     Active Substance: FERROUS SULFATE
  35. JULUCA [Concomitant]
     Active Substance: DOLUTEGRAVIR SODIUM\RILPIVIRINE HYDROCHLORIDE
  36. KETAMINE [Concomitant]
     Active Substance: KETAMINE
  37. MODAFINIL. [Concomitant]
     Active Substance: MODAFINIL
  38. VITAMINS NOS [Concomitant]
     Active Substance: VITAMINS
  39. MYCOPHENOLATE [Concomitant]
     Active Substance: MYCOPHENOLIC ACID
  40. TYLENOL WITH CODEINE [Concomitant]
     Active Substance: ACETAMINOPHEN\CODEINE PHOSPHATE
  41. UROXATRAL [Concomitant]
     Active Substance: ALFUZOSIN HYDROCHLORIDE
  42. PROCHLORPERAZINE. [Concomitant]
     Active Substance: PROCHLORPERAZINE
  43. ANTIHEMOPHILIC FACTOR, HUMAN RECOMBINANT. [Concomitant]
     Active Substance: ANTIHEMOPHILIC FACTOR, HUMAN RECOMBINANT
  44. VIREAD [Suspect]
     Active Substance: TENOFOVIR DISOPROXIL FUMARATE
     Indication: HIV INFECTION
     Dosage: UNK
     Route: 065
     Dates: start: 20040219, end: 200708
  45. ABACAVIR. [Concomitant]
     Active Substance: ABACAVIR
  46. ALFUZOSIN [Concomitant]
     Active Substance: ALFUZOSIN
  47. AUGMENTIN [Concomitant]
     Active Substance: AMOXICILLIN\CLAVULANATE POTASSIUM
  48. BACTRIM [Concomitant]
     Active Substance: SULFAMETHOXAZOLE\TRIMETHOPRIM
  49. KOGENATE [Concomitant]
     Active Substance: ANTIHEMOPHILIC FACTOR, HUMAN RECOMBINANT
  50. MECLOFENAMATE SODIUM. [Concomitant]
     Active Substance: MECLOFENAMATE SODIUM
  51. NEXIUM [Concomitant]
     Active Substance: ESOMEPRAZOLE MAGNESIUM
  52. SUCCINYLCHOLINE BROMIDE [Concomitant]
     Active Substance: SUXAMETHONIUM BROMIDE
  53. TAMSULOSIN [Concomitant]
     Active Substance: TAMSULOSIN
  54. VIAGRA [Concomitant]
     Active Substance: SILDENAFIL CITRATE
  55. VITAMIN D [VITAMIN D NOS] [Concomitant]
     Active Substance: VITAMIN D NOS
  56. DESCOVY [Concomitant]
     Active Substance: EMTRICITABINE\TENOFOVIR ALAFENAMIDE FUMARATE
  57. ACETAMINOPHEN. [Concomitant]
     Active Substance: ACETAMINOPHEN
  58. BENADRYL [Concomitant]
     Active Substance: DIPHENHYDRAMINE HYDROCHLORIDE
  59. CEPHALEXIN [CEFALEXIN] [Concomitant]
     Active Substance: CEPHALEXIN
  60. EPHEDRINE. [Concomitant]
     Active Substance: EPHEDRINE
  61. FENTANYL. [Concomitant]
     Active Substance: FENTANYL
  62. FLOMAX [Concomitant]
     Active Substance: TAMSULOSIN HYDROCHLORIDE
  63. GLUCOSAMINE AND CHONDROITIN [Concomitant]
     Active Substance: CHONDROITIN SULFATE (BOVINE)\GLUCOSAMINE HYDROCHLORIDE
  64. HYDRALAZINE [Concomitant]
     Active Substance: HYDRALAZINE HYDROCHLORIDE
  65. LOPINAVIR [Concomitant]
     Active Substance: LOPINAVIR
  66. INTRON [Concomitant]
     Active Substance: INTERFERON ALFA-2B
  67. SENNA [Concomitant]
     Active Substance: SENNA LEAF\SENNOSIDES\SENNOSIDES A AND B
  68. TRUVADA [Suspect]
     Active Substance: EMTRICITABINE\TENOFOVIR DISOPROXIL FUMARATE
     Dosage: UNK
     Route: 065
     Dates: start: 20070830, end: 20150526
  69. EPIVIR [Concomitant]
     Active Substance: LAMIVUDINE
  70. PREZISTA [Concomitant]
     Active Substance: DARUNAVIR ETHANOLATE
  71. TIVICAY [Concomitant]
     Active Substance: DOLUTEGRAVIR SODIUM
  72. AMINOCAPROIC ACID. [Concomitant]
     Active Substance: AMINOCAPROIC ACID
  73. LISINOPRIL. [Concomitant]
     Active Substance: LISINOPRIL
  74. LOSARTAN. [Concomitant]
     Active Substance: LOSARTAN
  75. RIFAMPIN. [Concomitant]
     Active Substance: RIFAMPIN
  76. SULFAMETHOXAZOLE AND TRIMETHOPRIM [Concomitant]
     Active Substance: SULFAMETHOXAZOLE\TRIMETHOPRIM
  77. VITAMIN D2 + CALCIUM [CALCIUM;ERGOCALCIFEROL] [Concomitant]
  78. VITAMIN D3 [Concomitant]
     Active Substance: CHOLECALCIFEROL
  79. ISENTRESS [Concomitant]
     Active Substance: RALTEGRAVIR POTASSIUM
  80. COLACE [Concomitant]
     Active Substance: DOCUSATE SODIUM
  81. HYDROCHLOROTHIAZIDE. [Concomitant]
     Active Substance: HYDROCHLOROTHIAZIDE
  82. METHOCARBAMOL. [Concomitant]
     Active Substance: METHOCARBAMOL
  83. NUVIGIL [Concomitant]
     Active Substance: ARMODAFINIL
  84. PEPCID AC [Concomitant]
     Active Substance: FAMOTIDINE
  85. PHENYLEPHRINE [Concomitant]
     Active Substance: PHENYLEPHRINE HYDROCHLORIDE
  86. POLYETHYLENE GLYCOL [MACROGOL] [Concomitant]
     Active Substance: POLYETHYLENE GLYCOLS
  87. TERAZOSIN [Concomitant]
     Active Substance: TERAZOSIN HYDROCHLORIDE
  88. TRAMADOL. [Concomitant]
     Active Substance: TRAMADOL
  89. TYLENOL [Concomitant]
     Active Substance: ACETAMINOPHEN
  90. VANCOMYCIN [Concomitant]
     Active Substance: VANCOMYCIN
  91. ZOFRAN [Concomitant]
     Active Substance: ONDANSETRON HYDROCHLORIDE

REACTIONS (8)
  - Hypertension [Not Recovered/Not Resolved]
  - Bone density decreased [Unknown]
  - Emotional distress [Not Recovered/Not Resolved]
  - Anhedonia [Not Recovered/Not Resolved]
  - Renal impairment [Not Recovered/Not Resolved]
  - Anxiety [Not Recovered/Not Resolved]
  - Chronic kidney disease [Not Recovered/Not Resolved]
  - Pain [Not Recovered/Not Resolved]

NARRATIVE: CASE EVENT DATE: 20040727
